FAERS Safety Report 8313946-9 (Version None)
Quarter: 2012Q2

REPORT INFORMATION
  Report Type: 
  Country: None (occurrence: None)
  Receive Date: 20120426
  Receipt Date: 20110808
  Transmission Date: 20120825
  Serious: Yes (Other)
  Sender: FDA-Public Use
  Company Number: US-TEVA-US021628

PATIENT
  Sex: Male
  Weight: 84 kg

DRUGS (4)
  1. REMERON [Concomitant]
     Indication: DEPRESSION
     Dosage: 45 MILLIGRAM;
     Route: 048
  2. PROVIGIL [Suspect]
     Indication: NARCOLEPSY
     Dosage: 300 MILLIGRAM;
     Route: 048
     Dates: start: 20050101
  3. DEPAKOTE [Concomitant]
     Indication: DEPRESSION
     Dosage: 1500 MILLIGRAM;
     Route: 048
  4. ABILIFY [Concomitant]
     Indication: DEPRESSION
     Dosage: 20 MILLIGRAM;
     Route: 048

REACTIONS (3)
  - SUICIDAL IDEATION [None]
  - DEPRESSION [None]
  - DRUG TOLERANCE [None]
